FAERS Safety Report 16092232 (Version 2)
Quarter: 2019Q2

REPORT INFORMATION
  Report Type: Report from Study
  Country: US (occurrence: US)
  Receive Date: 20190319
  Receipt Date: 20190426
  Transmission Date: 20190711
  Serious: Yes (Other)
  Sender: FDA-Public Use
  Company Number: US-SHIRE-US201908456

PATIENT
  Age: 59 Year
  Sex: Male

DRUGS (1)
  1. FIRAZYR [Suspect]
     Active Substance: ICATIBANT ACETATE
     Indication: IMMUNE SYSTEM DISORDER
     Dosage: 30 MILLIGRAM, AS REQ^D
     Route: 058
     Dates: start: 20120129

REACTIONS (5)
  - Scar [Not Recovered/Not Resolved]
  - Cardiac disorder [Not Recovered/Not Resolved]
  - Liver disorder [Not Recovered/Not Resolved]
  - Injection site pain [Unknown]
  - Injection site erythema [Unknown]

NARRATIVE: CASE EVENT DATE: 20190417
